FAERS Safety Report 10514397 (Version 1)
Quarter: 2014Q4

REPORT INFORMATION
  Report Type: Spontaneous
  Country: US (occurrence: US)
  Receive Date: 20141013
  Receipt Date: 20141013
  Transmission Date: 20150528
  Serious: Yes (Other)
  Sender: FDA-Public Use
  Company Number: US-TEVA-514159USA

PATIENT
  Sex: Male

DRUGS (1)
  1. CLARAVIS [Suspect]
     Active Substance: ISOTRETINOIN

REACTIONS (5)
  - Headache [Unknown]
  - Nausea [Unknown]
  - Myalgia [Unknown]
  - Visual acuity reduced [Unknown]
  - Muscular weakness [Unknown]
